FAERS Safety Report 13350387 (Version 1)
Quarter: 2017Q1

REPORT INFORMATION
  Report Type: Spontaneous
  Country: FR (occurrence: FR)
  Receive Date: 20170320
  Receipt Date: 20170320
  Transmission Date: 20170429
  Serious: Yes (Other)
  Sender: FDA-Public Use
  Company Number: FR-B.I. PHARMACEUTICALS,INC./RIDGEFIELD-2017-BI-014952

PATIENT
  Age: 46 Year
  Sex: Female

DRUGS (2)
  1. LEVODOPA [Concomitant]
     Active Substance: LEVODOPA
     Indication: PARKINSON^S DISEASE
     Route: 065
  2. SIFROL [Suspect]
     Active Substance: PRAMIPEXOLE
     Indication: PARKINSON^S DISEASE
     Route: 065

REACTIONS (6)
  - Clavicle fracture [Unknown]
  - Dropped head syndrome [Recovering/Resolving]
  - Fall [Unknown]
  - Parkinson^s disease [Unknown]
  - Pseudarthrosis [Recovered/Resolved]
  - Multiple system atrophy [Unknown]
